FAERS Safety Report 24268266 (Version 1)
Quarter: 2024Q3

REPORT INFORMATION
  Report Type: Spontaneous
  Country: CN (occurrence: CN)
  Receive Date: 20240830
  Receipt Date: 20240830
  Transmission Date: 20241017
  Serious: Yes (Other)
  Sender: MERCK
  Company Number: CN-009507513-2408CHN007940

PATIENT
  Age: 44 Year
  Sex: Female

DRUGS (3)
  1. TEMODAL [Suspect]
     Active Substance: TEMOZOLOMIDE
     Indication: Neoplasm malignant
     Dosage: 75 MILLIGRAM/SQ. METER/DAY; CONCURRENT CHEMORADIOTHERAPY; SYNCHRONOUS 42 DAYS, CYCLICAL
     Route: 048
     Dates: start: 20190730, end: 20190909
  2. TEMODAL [Suspect]
     Active Substance: TEMOZOLOMIDE
     Dosage: FIRST CYCLE: 150 MG/M2/DAY D1-5 AND THEN STOPPED FOR 23 DAYS; SECOND- SIXTH CYCLES: 200 MG/M2/D, D1-
     Route: 048
     Dates: start: 20191007, end: 20200423
  3. TEMODAL [Suspect]
     Active Substance: TEMOZOLOMIDE
     Dosage: SIXTH CYCLES: 200 MG/M2/D, D1-5, AND THEN STOPPED FOR 23 DAYS; CHEMOTHERAPY AFTER RELAPSE, CYCLICAL.
     Route: 048
     Dates: start: 20240610

REACTIONS (1)
  - Recurrent cancer [Unknown]

NARRATIVE: CASE EVENT DATE: 20240501
